FAERS Safety Report 18448566 (Version 1)
Quarter: 2020Q4

REPORT INFORMATION
  Report Type: Spontaneous
  Country: US (occurrence: US)
  Receive Date: 20201030
  Receipt Date: 20201030
  Transmission Date: 20210114
  Serious: No
  Sender: FDA-Public Use
  Company Number: US-TEVA-2020-US-1843012

PATIENT
  Age: 78 Year
  Sex: Female

DRUGS (1)
  1. LORAZEPAM TEVA [Suspect]
     Active Substance: LORAZEPAM
     Indication: ANXIETY
     Route: 065
     Dates: start: 2000

REACTIONS (4)
  - Head discomfort [Not Recovered/Not Resolved]
  - Product solubility abnormal [Unknown]
  - Visual impairment [Not Recovered/Not Resolved]
  - Drug ineffective [Unknown]
